FAERS Safety Report 4269477-9 (Version None)
Quarter: 2004Q1

REPORT INFORMATION
  Report Type: 
  Country: None (occurrence: None)
  Receive Date: 20040113
  Receipt Date: 20031219
  Transmission Date: 20041129
  Serious: Yes (Other)
  Sender: FDA-Public Use
  Company Number: BR-ROCHE-354542

PATIENT
  Sex: Male

DRUGS (1)
  1. XELODA [Suspect]
     Route: 048
     Dates: start: 20030815, end: 20031215

REACTIONS (2)
  - ABNORMAL BEHAVIOUR [None]
  - METASTASES TO CENTRAL NERVOUS SYSTEM [None]
